FAERS Safety Report 4771018-4 (Version None)
Quarter: 2005Q3

REPORT INFORMATION
  Report Type: 
  Country: None (occurrence: None)
  Receive Date: 20050914
  Receipt Date: 20050829
  Transmission Date: 20060218
  Serious: Yes (Hospitalization)
  Sender: FDA-Public Use
  Company Number: A-CH2005-09775

PATIENT
  Age: 46 Year
  Sex: Female

DRUGS (11)
  1. TRACLEER [Suspect]
     Indication: SCLERODERMA
     Dosage: SEE IMAGE
     Route: 048
  2. SANDOSTATIN [Suspect]
     Indication: SCLERODERMA
  3. FONZYLANE (BUFLOMEDIL HYDROCHLORIDE) [Concomitant]
  4. ERYTHROMYCIN [Concomitant]
  5. PANTOPRAZOLE SODIUM [Concomitant]
  6. LEVOTHYROXINE SODIUM [Concomitant]
  7. POTASSIUM CHLORIDE [Concomitant]
  8. GAVISCON (SODIUM ALGINATE, SODIUIIM BICARBONATE) [Concomitant]
  9. MOVICOL (POTASSIUM CHLORIDE, SODIUM BICARBONATE, MACROGOL, SODIUM CHLO [Concomitant]
  10. DEBRIDAT ^JOUVEINAL^ (TRIMEBUTINE MALEATE) [Concomitant]
  11. CIPROFLOXACIN HCL [Concomitant]

REACTIONS (5)
  - CUTANEOUS VASCULITIS [None]
  - DISEASE RECURRENCE [None]
  - OFF LABEL USE [None]
  - PYREXIA [None]
  - SUBCUTANEOUS NODULE [None]
